FAERS Safety Report 9492814 (Version 2)
Quarter: 2013Q3

REPORT INFORMATION
  Report Type: Spontaneous
  Country: US (occurrence: US)
  Receive Date: 20130830
  Receipt Date: 20130911
  Transmission Date: 20140515
  Serious: Yes (Hospitalization, Other)
  Sender: FDA-Public Use
  Company Number: US-GILEAD-2013-0082428

PATIENT
  Age: 50 Year
  Sex: Male

DRUGS (3)
  1. LETAIRIS [Suspect]
     Indication: PULMONARY HYPERTENSION
     Dosage: 5 MG, QD
     Route: 048
     Dates: start: 20130806
  2. LETAIRIS [Suspect]
     Indication: PULMONARY EMBOLISM
  3. SILDENAFIL [Concomitant]

REACTIONS (1)
  - Pulmonary embolism [Recovered/Resolved]
